FAERS Safety Report 10381898 (Version 1)
Quarter: 2014Q3

REPORT INFORMATION
  Report Type: Spontaneous
  Country: NO (occurrence: NO)
  Receive Date: 20140813
  Receipt Date: 20140813
  Transmission Date: 20150326
  Serious: Yes (Life-Threatening, Hospitalization, Disabling)
  Sender: FDA-Public Use
  Company Number: NO-GLAXOSMITHKLINE-B1023176A

PATIENT
  Age: 24 Year
  Sex: Female

DRUGS (3)
  1. CIPRALEX [Suspect]
     Active Substance: ESCITALOPRAM OXALATE
     Indication: ANXIETY
     Dosage: 10MG PER DAY
     Dates: start: 20100218, end: 20100309
  2. LAMICTAL [Suspect]
     Active Substance: LAMOTRIGINE
     Indication: ANXIETY
     Dosage: 25MG PER DAY
     Dates: start: 20100304, end: 20100307
  3. LAMICTAL [Suspect]
     Active Substance: LAMOTRIGINE
     Indication: ANXIETY
     Dosage: 50MG PER DAY
     Route: 065
     Dates: start: 20100307, end: 20100309

REACTIONS (8)
  - Depression [Unknown]
  - Anxiety [Unknown]
  - Mania [Unknown]
  - Psychotic disorder [Unknown]
  - Substance-induced psychotic disorder [Unknown]
  - Suicidal ideation [Not Recovered/Not Resolved]
  - Incoherent [Unknown]
  - Delusion [Unknown]

NARRATIVE: CASE EVENT DATE: 20100305
